FAERS Safety Report 6339149-5 (Version None)
Quarter: 2009Q3

REPORT INFORMATION
  Report Type: 
  Country: None (occurrence: None)
  Receive Date: 20090903
  Receipt Date: 20090406
  Transmission Date: 20100115
  Serious: No
  Sender: FDA-Public Use
  Company Number: US-BAYER-200917913NA

PATIENT
  Age: 73 Year
  Sex: Male

DRUGS (3)
  1. ULTRAVIST 300 [Suspect]
     Indication: COMPUTERISED TOMOGRAM ABDOMEN
     Dosage: TOTAL DAILY DOSE: 150 ML  UNIT DOSE: 200 ML
     Route: 042
     Dates: start: 20090324, end: 20090324
  2. PREDNISONE [Concomitant]
     Indication: PREMEDICATION
     Dosage: AS USED: 50 MG
     Dates: start: 20090324, end: 20090324
  3. BENADRYL [Concomitant]
     Dosage: AS USED: 50 MG
     Dates: start: 20090324, end: 20090324

REACTIONS (1)
  - PRURITUS [None]
